FAERS Safety Report 8346132 (Version 4)
Quarter: 2013Q2

REPORT INFORMATION
  Report Type: Spontaneous
  Country: US (occurrence: US)
  Receive Date: 20120120
  Receipt Date: 20120703
  Transmission Date: 20140414
  Serious: Yes (Hospitalization)
  Sender: FDA-Public Use
  Company Number: PHEH2012US001542

PATIENT
  Age: 43 Year
  Sex: Female
  Weight: 57 kg

DRUGS (9)
  1. GILENYA (FTY) CAPSULE, 0.5MG [Suspect]
     Indication: MULTIPLE SCLEROSIS
     Dosage: 0.5 MG, DAILY
     Route: 048
     Dates: start: 20110503, end: 20111230
  2. ONDANSETRON [Concomitant]
     Indication: NAUSEA
     Dosage: 4 MG, PRN
     Route: 048
     Dates: start: 2010
  3. BACLOFEN [Concomitant]
     Indication: MUSCLE SPASTICITY
     Dosage: 10 MG, TID
     Route: 048
     Dates: start: 201108
  4. LYRICA [Concomitant]
     Dosage: 50 MG, UNK
     Route: 048
  5. FAMPRIDINE [Concomitant]
     Indication: GAIT DISTURBANCE
     Dosage: 10 MG, BID
     Dates: start: 201106
  6. STEROIDS NOS [Concomitant]
     Indication: EYE PAIN
  7. PROZAC [Concomitant]
     Indication: DEPRESSION
     Dosage: 10 MG, QD
     Route: 048
  8. VITAMIN D3 [Concomitant]
     Dosage: UNK UKN, UNK
  9. XANAX [Concomitant]
     Indication: ANXIETY
     Dosage: 0.5 MG, UNK
     Dates: start: 2009

REACTIONS (15)
  - MULTIPLE SCLEROSIS [Unknown]
  - DYSPHAGIA [Unknown]
  - HEMIPARESIS [Unknown]
  - BRONCHITIS [Unknown]
  - DYSPNOEA [Recovering/Resolving]
  - FATIGUE [Unknown]
  - COUGH [Unknown]
  - DYSPHONIA [Unknown]
  - RESPIRATORY DISORDER [Unknown]
  - PULMONARY FUNCTION TEST ABNORMAL [Not Recovered/Not Resolved]
  - VITAL CAPACITY DECREASED [Unknown]
  - LUNG HYPERINFLATION [Unknown]
  - UPPER RESPIRATORY TRACT INFECTION [Recovering/Resolving]
  - OROPHARYNGEAL PAIN [Unknown]
  - LYMPHADENOPATHY [Unknown]
